FAERS Safety Report 20141007 (Version 1)
Quarter: 2021Q4

REPORT INFORMATION
  Report Type: Spontaneous
  Country: SE (occurrence: SE)
  Receive Date: 20211202
  Receipt Date: 20211202
  Transmission Date: 20220303
  Serious: Yes (Other)
  Sender: FDA-Public Use
  Company Number: None

PATIENT
  Age: 28 Year
  Sex: Female

DRUGS (1)
  1. PREGABALIN [Suspect]
     Active Substance: PREGABALIN
     Indication: Product used for unknown indication
     Dosage: UNK
     Dates: end: 202110

REACTIONS (15)
  - Motor dysfunction [Unknown]
  - Nightmare [Unknown]
  - Breast discomfort [Unknown]
  - Adnexa uteri pain [Unknown]
  - Crying [Unknown]
  - Decreased interest [Unknown]
  - Night sweats [Unknown]
  - Panic attack [Unknown]
  - Fatigue [Unknown]
  - Arthralgia [Unknown]
  - Anxiety [Unknown]
  - Swelling [Unknown]
  - Hallucination [Unknown]
  - Breast pain [Unknown]
  - Irritability [Unknown]

NARRATIVE: CASE EVENT DATE: 20210101
